FAERS Safety Report 9356160 (Version 1)
Quarter: 2013Q2

REPORT INFORMATION
  Report Type: Spontaneous
  Country: US (occurrence: US)
  Receive Date: 20130619
  Receipt Date: 20130619
  Transmission Date: 20140414
  Serious: Yes (Hospitalization)
  Sender: FDA-Public Use
  Company Number: US-PFIZER INC-2013183576

PATIENT
  Age: 30 Year
  Sex: Female

DRUGS (2)
  1. MS CONTIN [Suspect]
     Indication: SURGERY
     Dosage: UNK
     Route: 048
     Dates: end: 20130608
  2. OXYCODONE HYDROCHLORIDE [Suspect]
     Dosage: UNK
     Route: 048

REACTIONS (1)
  - Pyrexia [Not Recovered/Not Resolved]
